FAERS Safety Report 5738345-5 (Version None)
Quarter: 2008Q2

REPORT INFORMATION
  Report Type: 
  Country: None (occurrence: None)
  Receive Date: 20080513
  Receipt Date: 20080424
  Transmission Date: 20081010
  Serious: Yes (Death)
  Sender: FDA-Public Use
  Company Number: APP200800342

PATIENT
  Age: 65 Year
  Sex: Male
  Weight: 92.9874 kg

DRUGS (17)
  1. PROTAMINE SULFATE [Suspect]
     Indication: HEPARIN NEUTRALISATION THERAPY
     Dosage: SEE IMAGE
     Route: 042
     Dates: start: 20080421, end: 20080421
  2. KEFZOL [Concomitant]
  3. PEPCID [Concomitant]
  4. REGLAN [Concomitant]
  5. BICITRA (SHOHL'S) [Concomitant]
  6. VERSED [Concomitant]
  7. LIDOCAINE [Concomitant]
  8. NOVOLOG [Concomitant]
  9. LOVASTATIN [Concomitant]
  10. DIGOXIN [Concomitant]
  11. COREG [Concomitant]
  12. NORVASC [Concomitant]
  13. ZEMPLAR [Concomitant]
  14. LASIX [Concomitant]
  15. MULTIVITAMIN(VIGRAN) [Concomitant]
  16. COSOPT(COSOPT [Concomitant]
  17. TRAVATAN [Concomitant]

REACTIONS (4)
  - ANAPHYLACTIC REACTION [None]
  - CARDIAC ARREST [None]
  - ELECTROMECHANICAL DISSOCIATION [None]
  - PROCEDURAL COMPLICATION [None]
